FAERS Safety Report 19926943 (Version 1)
Quarter: 2021Q4

REPORT INFORMATION
  Report Type: Spontaneous
  Country: US (occurrence: US)
  Receive Date: 20211006
  Receipt Date: 20211006
  Transmission Date: 20220303
  Serious: No
  Sender: FDA-Public Use
  Company Number: US-MYLANLABS-2021M1069347

PATIENT
  Age: 5 Year
  Sex: Female
  Weight: 22.67 kg

DRUGS (1)
  1. EPINEPHRINE [Suspect]
     Active Substance: EPINEPHRINE
     Indication: Food allergy
     Dosage: UNK
     Route: 030

REACTIONS (2)
  - Off label use [Not Recovered/Not Resolved]
  - Product prescribing error [Unknown]
